FAERS Safety Report 19673525 (Version 1)
Quarter: 2021Q3

REPORT INFORMATION
  Report Type: Spontaneous
  Country: US (occurrence: US)
  Receive Date: 20210806
  Receipt Date: 20210806
  Transmission Date: 20211014
  Serious: Yes (Other)
  Sender: FDA-Public Use
  Company Number: None

PATIENT
  Age: 77 Year
  Sex: Female
  Weight: 80.55 kg

DRUGS (10)
  1. FISH OIL [Concomitant]
     Active Substance: FISH OIL
  2. LUTEIN [Concomitant]
     Active Substance: LUTEIN
  3. MULTIVITAMIN [Concomitant]
     Active Substance: VITAMINS
  4. ROSUVASTATIN. [Concomitant]
     Active Substance: ROSUVASTATIN
  5. XGEVA [Concomitant]
     Active Substance: DENOSUMAB
  6. FLUOXETINE [Concomitant]
     Active Substance: FLUOXETINE HYDROCHLORIDE
  7. METOPROLOL. [Concomitant]
     Active Substance: METOPROLOL
  8. ASPIRIN. [Concomitant]
     Active Substance: ASPIRIN
  9. LETROZOLE. [Suspect]
     Active Substance: LETROZOLE
     Indication: BREAST CANCER
     Route: 048
     Dates: start: 20200318
  10. VITAMIN C [Concomitant]
     Active Substance: ASCORBIC ACID

REACTIONS (4)
  - Dizziness [None]
  - Diarrhoea [None]
  - Fall [None]
  - Asthenia [None]

NARRATIVE: CASE EVENT DATE: 20210806
